FAERS Safety Report 15724776 (Version 2)
Quarter: 2018Q4

REPORT INFORMATION
  Report Type: Spontaneous
  Country: US (occurrence: US)
  Receive Date: 20181214
  Receipt Date: 20181218
  Transmission Date: 20190205
  Serious: No
  Sender: FDA-Public Use
  Company Number: US-009507513-1812USA004080

PATIENT
  Age: 50 Year
  Sex: Male

DRUGS (4)
  1. COZAAR [Suspect]
     Active Substance: LOSARTAN POTASSIUM
     Dosage: 25 MILLIGRAM
     Route: 048
     Dates: start: 2017
  2. COZAAR [Suspect]
     Active Substance: LOSARTAN POTASSIUM
     Dosage: 25 MILLIGRAM
     Route: 048
     Dates: start: 20181120
  3. COZAAR [Suspect]
     Active Substance: LOSARTAN POTASSIUM
     Indication: HYPERTENSION
     Dosage: 25 MILLIGRAM
     Route: 048
     Dates: start: 2016
  4. COZAAR [Suspect]
     Active Substance: LOSARTAN POTASSIUM
     Dosage: 25 MILLIGRAM
     Route: 048
     Dates: start: 20181127

REACTIONS (11)
  - Adverse event [Recovered/Resolved]
  - Adverse event [Recovered/Resolved]
  - Muscle spasms [Recovered/Resolved]
  - Palpitations [Recovered/Resolved]
  - Pain [Recovered/Resolved]
  - Wrong technique in product usage process [Unknown]
  - Palpitations [Recovered/Resolved]
  - Product dose omission [Unknown]
  - Product prescribing error [Unknown]
  - Pain [Recovered/Resolved]
  - Muscle spasms [Recovered/Resolved]

NARRATIVE: CASE EVENT DATE: 2017
